FAERS Safety Report 17836160 (Version 1)
Quarter: 2020Q2

REPORT INFORMATION
  Report Type: Spontaneous
  Country: CA (occurrence: CA)
  Receive Date: 20200528
  Receipt Date: 20200528
  Transmission Date: 20200714
  Serious: Yes (Death, Other)
  Sender: FDA-Public Use
  Company Number: CA-TEVA-2020-CA-1240226

PATIENT
  Age: 79 Year
  Sex: Male

DRUGS (3)
  1. MIDAZOLAM HYDROCHLORIDE. [Concomitant]
     Active Substance: MIDAZOLAM HYDROCHLORIDE
     Indication: SEDATION
  2. PROPOFOL. [Suspect]
     Active Substance: PROPOFOL
     Indication: ASSISTED SUICIDE
     Route: 042
  3. ROCURONIUM BROMIDE. [Suspect]
     Active Substance: ROCURONIUM BROMIDE
     Indication: ASSISTED SUICIDE
     Route: 042

REACTIONS (3)
  - Completed suicide [Fatal]
  - Euthanasia [Fatal]
  - Off label use [Fatal]
